FAERS Safety Report 20313181 (Version 2)
Quarter: 2022Q1

REPORT INFORMATION
  Report Type: Report from Study
  Country: US (occurrence: US)
  Receive Date: 20220109
  Receipt Date: 20220319
  Transmission Date: 20220424
  Serious: Yes (Other)
  Sender: FDA-Public Use
  Company Number: US-SA-SAC20220104000985

PATIENT
  Age: 62 Year
  Sex: Female

DRUGS (1)
  1. TERIFLUNOMIDE [Suspect]
     Active Substance: TERIFLUNOMIDE
     Indication: Multiple sclerosis
     Dosage: 7 MG, QD
     Route: 048
     Dates: start: 20190227, end: 20200101

REACTIONS (7)
  - Sepsis [Unknown]
  - Cardiac failure [Unknown]
  - Type 2 diabetes mellitus [Unknown]
  - Hemiplegia [Unknown]
  - Encephalopathy [Unknown]
  - Hypertensive heart disease [Unknown]
  - Urinary tract infection [Unknown]

NARRATIVE: CASE EVENT DATE: 20191016
